FAERS Safety Report 24149934 (Version 1)
Quarter: 2024Q3

REPORT INFORMATION
  Report Type: Report from Study
  Country: CO (occurrence: CO)
  Receive Date: 20240730
  Receipt Date: 20240730
  Transmission Date: 20241016
  Serious: Yes (Hospitalization, Other)
  Sender: ABBVIE
  Company Number: CO-ABBVIE-5851098

PATIENT
  Age: 57 Year
  Sex: Female
  Weight: 51 kg

DRUGS (9)
  1. BOTOX [Suspect]
     Active Substance: ONABOTULINUMTOXINA
     Indication: Migraine
     Dosage: TIME INTERVAL: AS NECESSARY: FREQUENCY?EVERY 4 MONTHS?FORM STRENGTH: 200 UNIT
     Route: 030
     Dates: start: 20220301, end: 20220301
  2. BOTOX [Suspect]
     Active Substance: ONABOTULINUMTOXINA
     Indication: Migraine
     Dosage: TIME INTERVAL: AS NECESSARY: FREQUENCY?EVERY 4 MONTHS?FORM STRENGTH: 200 UNIT
     Route: 030
     Dates: start: 20240311, end: 20240311
  3. ACETAMINOPHEN [Concomitant]
     Active Substance: ACETAMINOPHEN
     Indication: Arthralgia
     Dosage: FORM STRENGTH: 500 MILLIGRAMS
     Route: 048
     Dates: start: 202407
  4. MIRTAZAPINE [Concomitant]
     Active Substance: MIRTAZAPINE
     Indication: Migraine
     Dosage: 15 MILLIGRAM?FORM STRENGTH: 30 MILLIGRAM
     Route: 048
     Dates: start: 202405
  5. DEXAMETHASONE [Concomitant]
     Active Substance: DEXAMETHASONE
     Indication: Product used for unknown indication
     Dosage: NOT REPORTED
     Dates: start: 202407, end: 202407
  6. IBUPROFEN [Concomitant]
     Active Substance: IBUPROFEN
     Indication: Arthralgia
     Dosage: 800 MILLIGRAM
     Route: 048
     Dates: start: 202407
  7. IBUPROFEN [Concomitant]
     Active Substance: IBUPROFEN
     Indication: Arthralgia
     Dosage: FORM STRENGTH: 800 MILLIGRAM
     Route: 048
     Dates: start: 202407, end: 202407
  8. NAPROXEN [Concomitant]
     Active Substance: NAPROXEN
     Indication: Postoperative care
     Dosage: NOT REPORTED
     Route: 048
     Dates: start: 202407, end: 202407
  9. TOPIRAMATE [Concomitant]
     Active Substance: TOPIRAMATE
     Indication: Migraine
     Dosage: NOT REPORTED
     Route: 048
     Dates: end: 202403

REACTIONS (11)
  - Mammogram abnormal [Recovering/Resolving]
  - Dysarthria [Unknown]
  - Muscular weakness [Unknown]
  - Tremor [Unknown]
  - Anxiety [Unknown]
  - Gait disturbance [Unknown]
  - Asthenia [Unknown]
  - Nystagmus [Unknown]
  - Muscular weakness [Unknown]
  - Diplopia [Unknown]
  - Arthralgia [Unknown]

NARRATIVE: CASE EVENT DATE: 20240601
